FAERS Safety Report 23992220 (Version 2)
Quarter: 2024Q3

REPORT INFORMATION
  Report Type: Report from Study
  Country: CA (occurrence: CA)
  Receive Date: 20240620
  Receipt Date: 20240701
  Transmission Date: 20241016
  Serious: No
  Sender: ABBVIE
  Company Number: CA-ABBVIE-5800948

PATIENT
  Sex: Male
  Weight: 71 kg

DRUGS (1)
  1. SKYRIZI [Suspect]
     Active Substance: RISANKIZUMAB-RZAA
     Indication: Crohn^s disease
     Route: 058
     Dates: start: 20230411

REACTIONS (4)
  - Malaise [Unknown]
  - Therapeutic response shortened [Unknown]
  - Arthralgia [Unknown]
  - Crohn^s disease [Unknown]
